FAERS Safety Report 11319346 (Version 2)
Quarter: 2015Q3

REPORT INFORMATION
  Report Type: Spontaneous
  Country: BR (occurrence: BR)
  Receive Date: 20150729
  Receipt Date: 20150914
  Transmission Date: 20151125
  Serious: Yes (Other)
  Sender: FDA-Public Use
  Company Number: BR-PFIZER INC-2015237354

PATIENT
  Age: 77 Year
  Sex: Female

DRUGS (2)
  1. XALACOM [Suspect]
     Active Substance: LATANOPROST\TIMOLOL MALEATE
  2. XALATAN [Suspect]
     Active Substance: LATANOPROST
     Indication: INTRAOCULAR PRESSURE INCREASED
     Dosage: ONE DROP EACH EYE (3 ?G), 1X/DAY (AT NIGHT)
     Route: 047
     Dates: start: 1985

REACTIONS (3)
  - Product name confusion [Recovered/Resolved]
  - Cataract [Unknown]
  - Drug dispensing error [Recovered/Resolved]

NARRATIVE: CASE EVENT DATE: 201507
